FAERS Safety Report 23737391 (Version 4)
Quarter: 2024Q2

REPORT INFORMATION
  Report Type: Report from Study
  Country: US (occurrence: US)
  Receive Date: 20240412
  Receipt Date: 20240522
  Transmission Date: 20240716
  Serious: Yes (Hospitalization)
  Sender: FDA-Public Use
  Company Number: US-002147023-NVSC2021US191417

PATIENT
  Sex: Female
  Weight: 57.143 kg

DRUGS (7)
  1. TREPROSTINIL [Suspect]
     Active Substance: TREPROSTINIL
     Dosage: 143.57 NG/KG/MIN, CONT
     Route: 042
     Dates: start: 20240409
  2. TREPROSTINIL [Suspect]
     Active Substance: TREPROSTINIL
     Dosage: 140 NG/KG/MIN, CONT
     Route: 042
     Dates: start: 20210628
  3. TREPROSTINIL [Suspect]
     Active Substance: TREPROSTINIL
     Dosage: 148 NG/KG/MIN
     Route: 058
     Dates: start: 20210628
  4. TREPROSTINIL [Suspect]
     Active Substance: TREPROSTINIL
     Indication: Pulmonary arterial hypertension
     Dosage: 143.4 NG/KG/MIN
     Route: 065
     Dates: start: 20210628, end: 20210818
  5. TREPROSTINIL [Suspect]
     Active Substance: TREPROSTINIL
     Dosage: 143.4 NG/KG/MIN
     Route: 065
  6. OPSUMIT [Concomitant]
     Active Substance: MACITENTAN
     Indication: Product used for unknown indication
     Dosage: UNK
     Route: 065
  7. REVATIO [Concomitant]
     Active Substance: SILDENAFIL CITRATE
     Indication: Product used for unknown indication
     Dosage: UNK
     Route: 065

REACTIONS (22)
  - Therapy change [Unknown]
  - Palpitations [Unknown]
  - Rhinorrhoea [Not Recovered/Not Resolved]
  - Hypersensitivity [Not Recovered/Not Resolved]
  - Cough [Not Recovered/Not Resolved]
  - Throat irritation [Not Recovered/Not Resolved]
  - Lacrimation increased [Not Recovered/Not Resolved]
  - Nasal congestion [Unknown]
  - Respiratory tract congestion [Recovered/Resolved]
  - Feeling abnormal [Unknown]
  - Ill-defined disorder [Unknown]
  - Peripheral swelling [Unknown]
  - Malaise [Unknown]
  - Fall [Unknown]
  - Fatigue [Unknown]
  - Dyspnoea [Unknown]
  - Infusion site pain [Unknown]
  - Pain [Unknown]
  - Pain in extremity [Unknown]
  - Infusion site pruritus [Unknown]
  - Infusion site discharge [Unknown]
  - Drug ineffective [Unknown]
